FAERS Safety Report 9421054 (Version 2)
Quarter: 2013Q3

REPORT INFORMATION
  Report Type: Spontaneous
  Country: ES (occurrence: ES)
  Receive Date: 20130725
  Receipt Date: 20130809
  Transmission Date: 20140515
  Serious: Yes (Hospitalization)
  Sender: FDA-Public Use
  Company Number: ES-PFIZER INC-2013215712

PATIENT
  Age: 76 Year
  Sex: Female

DRUGS (4)
  1. PANTOPRAZOLE [Suspect]
     Dosage: UNK
  2. VANCOMYCIN HCL [Suspect]
     Indication: INFECTION
     Dosage: SEVERAL CYCLES
  3. AMIKACIN [Suspect]
     Indication: INFECTION
     Dosage: SEVERAL CYCLES
  4. ACICLOVIR [Suspect]
     Indication: INFECTION
     Dosage: SEVERAL CYCLES

REACTIONS (2)
  - Back pain [Recovered/Resolved]
  - Hypomagnesaemia [Recovered/Resolved]
